FAERS Safety Report 4521607-7 (Version None)
Quarter: 2004Q4

REPORT INFORMATION
  Report Type: 
  Country: None (occurrence: None)
  Receive Date: 20041209
  Receipt Date: 20041126
  Transmission Date: 20050328
  Serious: Yes (Other)
  Sender: FDA-Public Use
  Company Number: GB-JNJFOC-20041106341

PATIENT
  Sex: Female
  Weight: 64 kg

DRUGS (11)
  1. REMICADE [Suspect]
     Indication: RHEUMATOID ARTHRITIS
     Route: 042
  2. METHOTREXATE [Concomitant]
  3. FOLIC ACID [Concomitant]
  4. NABUMETONE [Concomitant]
  5. PREDNISOLONE [Concomitant]
  6. RANITIDINE [Concomitant]
  7. CO-PROXAMOL [Concomitant]
  8. CO-PROXAMOL [Concomitant]
  9. DIHYDROCODEINE [Concomitant]
  10. WARFARIN SODIUM [Concomitant]
  11. FOSAMAX [Concomitant]

REACTIONS (1)
  - BOWEN'S DISEASE [None]
